FAERS Safety Report 11774140 (Version 1)
Quarter: 2015Q4

REPORT INFORMATION
  Report Type: Spontaneous
  Country: US (occurrence: US)
  Receive Date: 20151124
  Receipt Date: 20151124
  Transmission Date: 20160304
  Serious: Yes (Other)
  Sender: FDA-Public Use
  Company Number: US-ASTRAZENECA-2015SF12340

PATIENT
  Age: 24163 Day
  Sex: Male
  Weight: 108.9 kg

DRUGS (7)
  1. DYSTOLIC [Concomitant]
     Indication: BLOOD PRESSURE ABNORMAL
     Route: 048
  2. CRESTOR [Suspect]
     Active Substance: ROSUVASTATIN CALCIUM
     Indication: ARTERIOSCLEROSIS
     Route: 048
     Dates: start: 20151023
  3. CRESTOR [Suspect]
     Active Substance: ROSUVASTATIN CALCIUM
     Indication: BLOOD CHLORIDE ABNORMAL
     Route: 048
     Dates: start: 20151023
  4. LOSARTAN. [Concomitant]
     Active Substance: LOSARTAN
     Indication: BLOOD PRESSURE ABNORMAL
     Route: 048
  5. ASPIRIN. [Concomitant]
     Active Substance: ASPIRIN
     Indication: BLOOD DISORDER
  6. BRILINTA [Suspect]
     Active Substance: TICAGRELOR
     Indication: STENT PLACEMENT
     Route: 048
     Dates: start: 20151023
  7. ENDOMETHICIN [Concomitant]
     Indication: GOUT
     Route: 048
     Dates: start: 20151024

REACTIONS (11)
  - Haemorrhage urinary tract [Recovering/Resolving]
  - Oxygen saturation decreased [Unknown]
  - Gout [Unknown]
  - Malaise [Unknown]
  - Proteinuria [Unknown]
  - Thyroid disorder [Unknown]
  - Blood urine present [Unknown]
  - Night sweats [Unknown]
  - Thrombosis [Recovered/Resolved]
  - Polyuria [Unknown]
  - Anxiety [Unknown]

NARRATIVE: CASE EVENT DATE: 20151024
